FAERS Safety Report 10250318 (Version 1)
Quarter: 2014Q2

REPORT INFORMATION
  Report Type: Spontaneous
  Country: GB (occurrence: GB)
  Receive Date: 20140620
  Receipt Date: 20140620
  Transmission Date: 20141212
  Serious: Yes (Other)
  Sender: FDA-Public Use
  Company Number: GB-WATSON-2014-13893

PATIENT
  Age: 58 Year
  Sex: Female

DRUGS (2)
  1. GENTAMICIN (UNKNOWN) [Suspect]
     Indication: PRODUCT USED FOR UNKNOWN INDICATION
     Dosage: UNKNOWN
     Route: 065
  2. FLUOXETINE [Concomitant]
     Indication: DEPRESSION
     Dosage: UNKNOWN
     Route: 065

REACTIONS (2)
  - Deafness neurosensory [Not Recovered/Not Resolved]
  - Dysphonia [Recovered/Resolved]
